FAERS Safety Report 18998907 (Version 3)
Quarter: 2021Q2

REPORT INFORMATION
  Report Type: Report from Study
  Country: US (occurrence: US)
  Receive Date: 20210311
  Receipt Date: 20210418
  Transmission Date: 20210717
  Serious: Yes (Hospitalization)
  Sender: FDA-Public Use
  Company Number: US-JNJFOC-20210124133

PATIENT
  Age: 60 Year
  Sex: Female
  Weight: 59.1 kg

DRUGS (6)
  1. TREPROSTINIL. [Concomitant]
     Active Substance: TREPROSTINIL
  2. ORENITRAM [Suspect]
     Active Substance: TREPROSTINIL
     Route: 065
  3. ORENITRAM [Suspect]
     Active Substance: TREPROSTINIL
     Route: 065
  4. SILDENAFIL CITRATE. [Concomitant]
     Active Substance: SILDENAFIL CITRATE
  5. SELEXIPAG [Suspect]
     Active Substance: SELEXIPAG
     Indication: PULMONARY ARTERIAL HYPERTENSION
     Route: 048
     Dates: end: 202102
  6. MACITENTAN [Suspect]
     Active Substance: MACITENTAN
     Indication: PULMONARY ARTERIAL HYPERTENSION
     Route: 048

REACTIONS (15)
  - Illness [Unknown]
  - Malaise [Unknown]
  - Joint swelling [Unknown]
  - Pneumonia [Unknown]
  - Myalgia [Recovering/Resolving]
  - Back pain [Unknown]
  - Pain in extremity [Recovering/Resolving]
  - Dyspnoea [Recovering/Resolving]
  - Therapeutic product effect decreased [Unknown]
  - Headache [Unknown]
  - Peripheral swelling [Unknown]
  - Neck pain [Unknown]
  - Dyspnoea exertional [Unknown]
  - Unevaluable event [Recovering/Resolving]
  - Cough [Unknown]

NARRATIVE: CASE EVENT DATE: 202005
